FAERS Safety Report 10426943 (Version 1)
Quarter: 2014Q3

REPORT INFORMATION
  Report Type: Spontaneous
  Country: US (occurrence: None)
  Receive Date: 20140902
  Receipt Date: 20140902
  Transmission Date: 20150326
  Serious: Yes (Other)
  Sender: FDA-Public Use
  Company Number: None

PATIENT
  Age: 62 Year
  Sex: Male
  Weight: 68.04 kg

DRUGS (2)
  1. LIPITOR [Suspect]
     Active Substance: ATORVASTATIN CALCIUM
     Indication: BLOOD CHOLESTEROL INCREASED
     Dosage: 1 PILL, ONCE DAILY, TAKEN BY MOUTH
     Route: 048
  2. ZOCOR [Suspect]
     Active Substance: SIMVASTATIN

REACTIONS (6)
  - Heart rate irregular [None]
  - Drug hypersensitivity [None]
  - Confusional state [None]
  - Dizziness [None]
  - Malaise [None]
  - Influenza like illness [None]

NARRATIVE: CASE EVENT DATE: 20080801
